FAERS Safety Report 7622378-8 (Version None)
Quarter: 2011Q3

REPORT INFORMATION
  Report Type: 
  Country: None (occurrence: None)
  Receive Date: 20110711
  Receipt Date: 20110627
  Transmission Date: 20111222
  Serious: Yes (Other)
  Sender: FDA-Public Use
  Company Number: 2011SP029883

PATIENT
  Age: 32 Year
  Sex: Female
  Weight: 62 kg

DRUGS (5)
  1. NEXPLANON [Suspect]
  2. NEXPLANON [Suspect]
     Indication: CONTRACEPTION
     Dosage: 68 MG;
     Route: 058
     Dates: start: 20110525, end: 20110607
  3. NEXPLANON [Suspect]
     Indication: CONTRACEPTION
     Dosage: 68 MG;
     Route: 058
     Dates: start: 20110607, end: 20110610
  4. NEXPLANON [Suspect]
  5. NEXPLANON [Suspect]

REACTIONS (4)
  - ERYTHEMA [None]
  - HYPERSENSITIVITY [None]
  - INFLAMMATION [None]
  - INFECTION [None]
